FAERS Safety Report 6566802-0 (Version None)
Quarter: 2010Q1

REPORT INFORMATION
  Report Type: 
  Country: None (occurrence: None)
  Receive Date: 20100202
  Receipt Date: 20100122
  Transmission Date: 20100710
  Serious: Yes (Death, Congenital Anomaly)
  Sender: FDA-Public Use
  Company Number: US-WATSON-2010-00918

PATIENT

DRUGS (1)
  1. LAMOTRIGINE [Suspect]
     Indication: EPILEPSY
     Dosage: UNK

REACTIONS (13)
  - ANENCEPHALY [None]
  - CLEFT LIP [None]
  - CLEFT LIP AND PALATE [None]
  - CLEFT PALATE [None]
  - CRANIOSYNOSTOSIS [None]
  - EAGLE BARRETT SYNDROME [None]
  - HEART DISEASE CONGENITAL [None]
  - HOLOPROSENCEPHALY [None]
  - HYDROCEPHALUS [None]
  - INGUINAL HERNIA [None]
  - LIMB MALFORMATION [None]
  - STILLBIRTH [None]
  - URETHRAL OBSTRUCTION [None]
